FAERS Safety Report 17126277 (Version 1)
Quarter: 2019Q4

REPORT INFORMATION
  Report Type: Spontaneous
  Country: IE (occurrence: IE)
  Receive Date: 20191209
  Receipt Date: 20191209
  Transmission Date: 20200122
  Serious: Yes (Death, Hospitalization, Other)
  Sender: FDA-Public Use
  Company Number: IE-ROCHE-2485806

PATIENT
  Age: 36 Year
  Sex: Female

DRUGS (5)
  1. DABRAFENIB [Suspect]
     Active Substance: DABRAFENIB
     Dosage: UNK (AT REDUCED DOSE - WEEK ON/WEEK OFF REGIME)
     Route: 065
     Dates: start: 201606
  2. DABRAFENIB [Suspect]
     Active Substance: DABRAFENIB
     Indication: METASTATIC MALIGNANT MELANOMA
     Route: 065
     Dates: start: 201601, end: 201605
  3. VEMURAFENIB. [Suspect]
     Active Substance: VEMURAFENIB
     Indication: PRODUCT USED FOR UNKNOWN INDICATION
     Dosage: UNK
     Route: 065
     Dates: start: 201605
  4. TRAMETINIB [Suspect]
     Active Substance: TRAMETINIB
     Indication: METASTATIC MALIGNANT MELANOMA
     Dosage: UNK
     Route: 065
     Dates: end: 201605
  5. TRAMETINIB [Suspect]
     Active Substance: TRAMETINIB
     Dosage: UNK (AT REDUCED DOSE - WEEK ON/WEEK OFF REGIME)
     Route: 065
     Dates: start: 201606

REACTIONS (13)
  - Neck pain [Unknown]
  - Metastases to meninges [Not Recovered/Not Resolved]
  - Pyrexia [Unknown]
  - Seizure [Unknown]
  - Hypoaesthesia [Unknown]
  - Dizziness [Not Recovered/Not Resolved]
  - Uveitis [Unknown]
  - Mucosal inflammation [Unknown]
  - Death [Fatal]
  - Nausea [Not Recovered/Not Resolved]
  - General physical health deterioration [Unknown]
  - Periorbital oedema [Unknown]
  - Headache [Not Recovered/Not Resolved]

NARRATIVE: CASE EVENT DATE: 201605
